FAERS Safety Report 8041319-5 (Version None)
Quarter: 2012Q1

REPORT INFORMATION
  Report Type: 
  Country: None (occurrence: None)
  Receive Date: 20120112
  Receipt Date: 20120109
  Transmission Date: 20120608
  Serious: Yes (Other)
  Sender: FDA-Public Use
  Company Number: US-PFIZER INC-2011230052

PATIENT
  Sex: Female
  Weight: 65.8 kg

DRUGS (8)
  1. SUTENT [Suspect]
     Dosage: 25 MG, UNK
     Route: 048
     Dates: start: 20110101, end: 20110101
  2. SUTENT [Suspect]
     Dosage: 12.5 MG, UNK
     Route: 048
     Dates: start: 20110101, end: 20110101
  3. SUTENT [Suspect]
     Dosage: 30 MG, UNK
     Route: 050
     Dates: start: 20110101, end: 20110101
  4. SUTENT [Suspect]
     Dosage: 12.5 MG, 3X/DAY
     Route: 048
     Dates: start: 20110101, end: 20110101
  5. SUTENT [Suspect]
     Dosage: 45 MG, UNK
     Route: 050
     Dates: start: 20110101, end: 20110101
  6. SUTENT [Suspect]
     Indication: GASTROINTESTINAL STROMAL TUMOUR
     Dosage: 12.5 MG, 1X/DAY
     Route: 048
     Dates: start: 20110101, end: 20110101
  7. SUTENT [Suspect]
     Dosage: 25 MG, UNK
     Route: 048
     Dates: start: 20110101, end: 20110101
  8. SUTENT [Suspect]
     Dosage: 30 MG, UNK
     Route: 050

REACTIONS (6)
  - ORAL PRURITUS [None]
  - DISEASE PROGRESSION [None]
  - EATING DISORDER [None]
  - GASTROINTESTINAL STROMAL TUMOUR [None]
  - HAEMORRHAGE [None]
  - OVERDOSE [None]
